FAERS Safety Report 15066398 (Version 1)
Quarter: 2018Q2

REPORT INFORMATION
  Report Type: Spontaneous
  Country: US (occurrence: US)
  Receive Date: 20180606
  Receipt Date: 20180606
  Transmission Date: 20180711
  Serious: No
  Sender: FDA-Public Use
  Company Number: None

PATIENT
  Age: 42 Year
  Sex: Female

DRUGS (3)
  1. GRALISE [Suspect]
     Active Substance: GABAPENTIN
     Indication: ARTHRALGIA
  2. GRALISE [Suspect]
     Active Substance: GABAPENTIN
     Indication: PAIN IN EXTREMITY
     Dosage: ?          QUANTITY:3 DF DOSAGE FORM;?
     Route: 048
     Dates: start: 20170601
  3. GRALISE [Suspect]
     Active Substance: GABAPENTIN
     Indication: POLYARTHRITIS

REACTIONS (8)
  - Paraesthesia [None]
  - Nausea [None]
  - Product label issue [None]
  - Memory impairment [None]
  - Hyperhidrosis [None]
  - Headache [None]
  - Nervous system disorder [None]
  - Palpitations [None]

NARRATIVE: CASE EVENT DATE: 20180520
